FAERS Safety Report 18661586 (Version 1)
Quarter: 2020Q4

REPORT INFORMATION
  Report Type: Spontaneous
  Country: ES (occurrence: ES)
  Receive Date: 20201224
  Receipt Date: 20201224
  Transmission Date: 20210114
  Serious: Yes (Hospitalization)
  Sender: FDA-Public Use
  Company Number: ES-NOVOPROD-775140

PATIENT
  Age: 49 Year
  Sex: Female

DRUGS (2)
  1. SAXENDA [Suspect]
     Active Substance: LIRAGLUTIDE
     Dosage: RESTARTED TREATMENT WITH UNKNOWN START DATE
     Route: 065
  2. SAXENDA [Suspect]
     Active Substance: LIRAGLUTIDE
     Indication: PRODUCT USED FOR UNKNOWN INDICATION
     Dosage: 3 MG
     Route: 065

REACTIONS (3)
  - Renal colic [Unknown]
  - Cholelithiasis [Recovered/Resolved]
  - Biliary obstruction [Unknown]

NARRATIVE: CASE EVENT DATE: 202008
